FAERS Safety Report 11720717 (Version 1)
Quarter: 2015Q4

REPORT INFORMATION
  Report Type: Spontaneous
  Country: GB (occurrence: GB)
  Receive Date: 20151110
  Receipt Date: 20151110
  Transmission Date: 20160304
  Serious: Yes (Other)
  Sender: FDA-Public Use
  Company Number: GB-ALLERGAN-1523343US

PATIENT
  Age: 11 Year
  Sex: Female

DRUGS (2)
  1. IOPIDINE [Concomitant]
     Active Substance: APRACLONIDINE HYDROCHLORIDE
     Dosage: 1 DF, BID
     Dates: start: 201506
  2. LUMIGAN [Suspect]
     Active Substance: BIMATOPROST
     Indication: INTRAOCULAR PRESSURE INCREASED
     Dosage: UNK
     Route: 047
     Dates: start: 2010

REACTIONS (8)
  - Off label use [Unknown]
  - Drug effect decreased [Unknown]
  - Lid sulcus deepened [Unknown]
  - Growth of eyelashes [Unknown]
  - Obsessive-compulsive disorder [Unknown]
  - Visual acuity reduced [Unknown]
  - Nausea [Not Recovered/Not Resolved]
  - Anxiety [Not Recovered/Not Resolved]

NARRATIVE: CASE EVENT DATE: 2010
